FAERS Safety Report 5213072-1 (Version None)
Quarter: 2007Q1

REPORT INFORMATION
  Report Type: 
  Country: None (occurrence: None)
  Receive Date: 20070119
  Receipt Date: 20070111
  Transmission Date: 20070707
  Serious: Yes (Hospitalization)
  Sender: FDA-Public Use
  Company Number: 2007CG00092

PATIENT
  Age: 88 Year
  Sex: Male

DRUGS (6)
  1. OMEPRAZOLE [Suspect]
     Route: 048
     Dates: start: 20060720
  2. TRAMADOL HCL [Suspect]
     Route: 048
     Dates: start: 20060720, end: 20060726
  3. SPASFON [Suspect]
     Route: 048
     Dates: start: 20060720, end: 20060726
  4. PLAVIX [Suspect]
     Route: 048
     Dates: end: 20060725
  5. OFLOCET [Suspect]
     Indication: LUNG DISORDER
     Dates: start: 20060701
  6. AUGMENTIN '125' [Suspect]
     Indication: LUNG DISORDER
     Dates: start: 20060701

REACTIONS (2)
  - CYTOLYTIC HEPATITIS [None]
  - GAMMA-GLUTAMYLTRANSFERASE INCREASED [None]
